FAERS Safety Report 5458873-X (Version None)
Quarter: 2007Q3

REPORT INFORMATION
  Report Type: 
  Country: None (occurrence: None)
  Receive Date: 20070919
  Receipt Date: 20060928
  Transmission Date: 20080115
  Serious: Yes (Other)
  Sender: FDA-Public Use
  Company Number: PHBS2007IT14973

PATIENT
  Sex: Male

DRUGS (3)
  1. AREDIA [Suspect]
     Indication: MULTIPLE MYELOMA
     Dates: start: 20000101
  2. ZOMETA [Suspect]
     Indication: MULTIPLE MYELOMA
  3. ANTINEOPLASTIC AGENTS [Concomitant]
     Indication: MULTIPLE MYELOMA
     Dates: start: 20000101

REACTIONS (4)
  - JAW OPERATION [None]
  - OSTEONECROSIS [None]
  - TOOTH DISORDER [None]
  - TOOTH EXTRACTION [None]
